FAERS Safety Report 7585544-6 (Version None)
Quarter: 2011Q3

REPORT INFORMATION
  Report Type: 
  Country: None (occurrence: None)
  Receive Date: 20110701
  Receipt Date: 20110622
  Transmission Date: 20111222
  Serious: Yes (Hospitalization)
  Sender: FDA-Public Use
  Company Number: US-ABBOTT-11P-163-0734349-00

PATIENT
  Age: 84 Year
  Sex: Female
  Weight: 70.37 kg

DRUGS (3)
  1. TOPROL-XL [Concomitant]
     Indication: PRODUCT USED FOR UNKNOWN INDICATION
  2. DIOVAN [Concomitant]
     Indication: PRODUCT USED FOR UNKNOWN INDICATION
  3. HUMIRA [Suspect]
     Indication: PSORIASIS
     Dates: start: 20110201, end: 20110401

REACTIONS (3)
  - DYSPNOEA [None]
  - SKIN DISCOLOURATION [None]
  - POOR QUALITY DRUG ADMINISTERED [None]
